FAERS Safety Report 22682541 (Version 9)
Quarter: 2023Q4

REPORT INFORMATION
  Report Type: Report from Study
  Country: NO (occurrence: NO)
  Receive Date: 20230707
  Receipt Date: 20231127
  Transmission Date: 20240109
  Serious: Yes (Hospitalization)
  Sender: FDA-Public Use
  Company Number: NO-JNJFOC-20230671877

PATIENT
  Age: 76 Year
  Sex: Male
  Weight: 63.4 kg

DRUGS (23)
  1. BORTEZOMIB [Suspect]
     Active Substance: BORTEZOMIB
     Indication: Plasma cell myeloma
     Dosage: 0.97 MILLILITER
     Route: 057
     Dates: start: 20230404, end: 20230612
  2. DEXAMETHASONE [Suspect]
     Active Substance: DEXAMETHASONE
     Indication: Plasma cell myeloma
     Dosage: 20 MILLIGRAM
     Route: 048
     Dates: start: 20230404, end: 20230616
  3. LENALIDOMIDE [Suspect]
     Active Substance: LENALIDOMIDE
     Indication: Plasma cell myeloma
     Dosage: 25 MILLIGRAM
     Route: 048
     Dates: start: 20230404, end: 20230618
  4. CETIRIZINE HYDROCHLORIDE [Concomitant]
     Active Substance: CETIRIZINE HYDROCHLORIDE
     Indication: Seasonal allergy
     Dosage: 10 MILLIGRAM, QD
     Route: 048
     Dates: start: 20220201
  5. LACTULOSE [Concomitant]
     Active Substance: LACTULOSE
     Indication: Constipation prophylaxis
     Dosage: 15 MILLILITER, BID
     Route: 048
     Dates: start: 20230404
  6. ASPIRIN [Concomitant]
     Active Substance: ASPIRIN
     Indication: Arterial occlusive disease
     Dosage: 75 MILLIGRAM, QD
     Route: 048
  7. ATORVASTATIN [Concomitant]
     Active Substance: ATORVASTATIN
     Indication: Arterial occlusive disease
     Dosage: 20 MILLIGRAM, QD
     Route: 048
  8. CALCIUM CARBONATE\CHOLECALCIFEROL [Concomitant]
     Active Substance: CALCIUM CARBONATE\CHOLECALCIFEROL
     Indication: Osteoporosis prophylaxis
     Dosage: 500 MILLIGRAM, QD
     Route: 048
  9. COSOPT [Concomitant]
     Active Substance: DORZOLAMIDE HYDROCHLORIDE\TIMOLOL MALEATE
     Indication: Glaucoma
     Dosage: 22.26/6.83 MILLIGRAM, BID
     Route: 047
  10. EZETIMIBE [Concomitant]
     Active Substance: EZETIMIBE
     Indication: Hypercholesterolaemia
     Dosage: 10 MILLIGRAM, QD
     Route: 048
  11. PANTOPRAZOLE [Concomitant]
     Active Substance: PANTOPRAZOLE
     Indication: Cancer surgery
     Dosage: 20 MILLIGRAM, QD
     Route: 048
  12. PFIZER-BIONTECH COVID-19 VACCINE [Concomitant]
     Active Substance: TOZINAMERAN
     Indication: COVID-19 prophylaxis
     Dosage: 1 DOSAGE FORM, QD
     Route: 030
  13. AMOXICILLIN [Concomitant]
     Active Substance: AMOXICILLIN
     Indication: Parainfluenzae virus infection
     Dosage: 500 MILLIGRAM, TID
     Route: 048
     Dates: start: 20230611, end: 20230621
  14. AMOXICILLIN [Concomitant]
     Active Substance: AMOXICILLIN
     Indication: Bronchitis
  15. AMOXICILLIN [Concomitant]
     Active Substance: AMOXICILLIN
     Indication: Cough
  16. ACETYLCYSTEINE [Concomitant]
     Active Substance: ACETYLCYSTEINE
     Indication: Parainfluenzae virus infection
     Dosage: 200 MILLIGRAM
     Route: 048
     Dates: start: 20230621, end: 20230629
  17. ACETYLCYSTEINE [Concomitant]
     Active Substance: ACETYLCYSTEINE
     Indication: Bronchitis
  18. Lactic acid bacteria complex [Concomitant]
     Indication: Diarrhoea
     Dosage: 1 DOSAGE FORM, QD
     Route: 048
     Dates: start: 20230621
  19. LOPERAMIDE HYDROCHLORIDE [Concomitant]
     Active Substance: LOPERAMIDE HYDROCHLORIDE
     Indication: Diarrhoea
     Dosage: 2 MILLIGRAM
     Route: 048
     Dates: start: 20230621
  20. BERLOCOMBIN [Concomitant]
     Indication: Parainfluenzae virus infection
     Dosage: 400/80 MILLIGRAM
     Route: 048
     Dates: start: 20230621, end: 20230626
  21. DORZOLAMIDE\TIMOLOL [Concomitant]
     Active Substance: DORZOLAMIDE\TIMOLOL
     Indication: Glaucoma
     Dosage: 22.26/6.83 MILLIGRAM, BID
     Route: 065
  22. SULFAMETHOXAZOLE\TRIMETHOPRIM [Concomitant]
     Active Substance: SULFAMETHOXAZOLE\TRIMETHOPRIM
     Indication: Parainfluenzae virus infection
     Dosage: 400/80 MILLIGRAM, QD
     Route: 048
     Dates: start: 20230621, end: 20230626
  23. SULFAMETHOXAZOLE\TRIMETHOPRIM [Concomitant]
     Active Substance: SULFAMETHOXAZOLE\TRIMETHOPRIM
     Indication: Bronchitis

REACTIONS (2)
  - Streptococcal infection [Recovered/Resolved]
  - Bronchitis [Recovered/Resolved]

NARRATIVE: CASE EVENT DATE: 20230623
